FAERS Safety Report 11538591 (Version 2)
Quarter: 2020Q2

REPORT INFORMATION
  Report Type: Spontaneous
  Country: US (occurrence: US)
  Receive Date: 20150922
  Receipt Date: 20200629
  Transmission Date: 20200713
  Serious: Yes (Hospitalization, Other)
  Sender: FDA-Public Use
  Company Number: US-ROCHE-1635829

PATIENT
  Sex: Male

DRUGS (13)
  1. ALEVE [Concomitant]
     Active Substance: NAPROXEN SODIUM
     Indication: RHEUMATOID ARTHRITIS
  2. VITAMIN D2 [Concomitant]
     Active Substance: ERGOCALCIFEROL
     Route: 048
     Dates: start: 20170204
  3. PRAVASTATIN. [Concomitant]
     Active Substance: PRAVASTATIN
  4. ELIQUIS [Concomitant]
     Active Substance: APIXABAN
     Indication: ATRIAL FIBRILLATION
     Route: 048
     Dates: start: 20170318
  5. CULTURELLE KIDS CHEWABLES [Concomitant]
     Route: 048
     Dates: start: 20150914
  6. PLAVIX [Concomitant]
     Active Substance: CLOPIDOGREL BISULFATE
     Indication: TRANSIENT ISCHAEMIC ATTACK
  7. IRON [Concomitant]
     Active Substance: IRON
     Indication: ANAEMIA
     Route: 065
  8. VITAMIN B12 [MECOBALAMIN] [Concomitant]
     Route: 048
  9. L METHYLFOLATE [Concomitant]
     Route: 048
     Dates: start: 20170214
  10. NIFEDIPINE. [Concomitant]
     Active Substance: NIFEDIPINE
     Route: 048
  11. TYLENOL [Concomitant]
     Active Substance: ACETAMINOPHEN
  12. COLACE [Concomitant]
     Active Substance: DOCUSATE SODIUM
     Indication: CONSTIPATION
  13. ACTEMRA [Suspect]
     Active Substance: TOCILIZUMAB
     Indication: RHEUMATOID ARTHRITIS
     Route: 042
     Dates: start: 20121228, end: 20200526

REACTIONS (12)
  - Intestinal perforation [Not Recovered/Not Resolved]
  - Aura [Unknown]
  - Neuropathy peripheral [Unknown]
  - Barrett^s oesophagus [Not Recovered/Not Resolved]
  - Constipation [Not Recovered/Not Resolved]
  - Transient ischaemic attack [Recovered/Resolved]
  - Cerebral infarction [Unknown]
  - Anaemia [Not Recovered/Not Resolved]
  - Cluster headache [Unknown]
  - Polyp [Not Recovered/Not Resolved]
  - Helicobacter infection [Recovered/Resolved]
  - Ocular discomfort [Recovered/Resolved]
